FAERS Safety Report 11246251 (Version 1)
Quarter: 2015Q3

REPORT INFORMATION
  Report Type: Spontaneous
  Country: US (occurrence: None)
  Receive Date: 20150706
  Receipt Date: 20150706
  Transmission Date: 20151125
  Serious: Yes (Hospitalization)
  Sender: FDA-Public Use
  Company Number: None

PATIENT
  Age: 20 Year
  Sex: Male
  Weight: 78.8 kg

DRUGS (2)
  1. MORPHINE SULFATE. [Suspect]
     Active Substance: MORPHINE SULFATE
     Indication: POSTOPERATIVE ANALGESIA
     Dosage: 3 MG, 6 HR BETWEE DOSES, INTRAVENOUS
     Route: 042
  2. MORPHINE SULFATE. [Suspect]
     Active Substance: MORPHINE SULFATE
     Indication: HEADACHE
     Dosage: 3 MG, 6 HR BETWEE DOSES, INTRAVENOUS
     Route: 042

REACTIONS (6)
  - Bradycardia [None]
  - Oxygen saturation decreased [None]
  - Hypoxia [None]
  - Seizure [None]
  - Respiratory depression [None]
  - Pallor [None]

NARRATIVE: CASE EVENT DATE: 20140327
